FAERS Safety Report 13959317 (Version 3)
Quarter: 2018Q3

REPORT INFORMATION
  Report Type: Spontaneous
  Country: US (occurrence: US)
  Receive Date: 20170911
  Receipt Date: 20180704
  Transmission Date: 20181010
  Serious: Yes (Hospitalization, Other)
  Sender: FDA-Public Use
  Company Number: US-DSJP-DSU-2017-135877

PATIENT

DRUGS (1)
  1. BENICAR [Suspect]
     Active Substance: OLMESARTAN MEDOXOMIL
     Indication: BLOOD PRESSURE MANAGEMENT
     Dosage: 40 MG, QD
     Route: 048
     Dates: start: 20140101, end: 20170912

REACTIONS (6)
  - Weight decreased [Unknown]
  - Hiatus hernia [Unknown]
  - Gastrooesophageal reflux disease [Recovered/Resolved]
  - Gastroenteritis [Recovering/Resolving]
  - Gastrointestinal haemorrhage [Unknown]
  - Oesophageal ulcer [Unknown]

NARRATIVE: CASE EVENT DATE: 20140401
